FAERS Safety Report 7810240-7 (Version None)
Quarter: 2011Q4

REPORT INFORMATION
  Report Type: 
  Country: None (occurrence: None)
  Receive Date: 20111012
  Receipt Date: 20111003
  Transmission Date: 20120403
  Serious: Yes (Other)
  Sender: FDA-Public Use
  Company Number: JP-ASTRAZENECA-2011SE58667

PATIENT
  Age: 68 Year
  Sex: Female

DRUGS (7)
  1. HALOPERIDOL [Concomitant]
     Route: 048
     Dates: end: 20110930
  2. RISPERDAL [Concomitant]
     Route: 048
     Dates: end: 20110930
  3. CARVEDILOL [Concomitant]
     Route: 048
     Dates: end: 20110930
  4. TOBRACIN [Concomitant]
     Route: 065
     Dates: end: 20110930
  5. XYLOCAINE [Suspect]
     Indication: EXTRASYSTOLES
     Route: 042
     Dates: start: 20110918, end: 20110930
  6. AMITRIPTYLINE HCL [Concomitant]
     Route: 048
     Dates: end: 20110930
  7. NEOMALLERMIN [Concomitant]
     Route: 048
     Dates: end: 20110930

REACTIONS (1)
  - PLATELET COUNT DECREASED [None]
